FAERS Safety Report 7542318-X (Version None)
Quarter: 2011Q2

REPORT INFORMATION
  Report Type: 
  Country: None (occurrence: None)
  Receive Date: 20110524
  Receipt Date: 20110308
  Transmission Date: 20111010
  Serious: No
  Sender: FDA-Public Use
  Company Number: 028887

PATIENT
  Sex: Female
  Weight: 65.3 kg

DRUGS (4)
  1. CIMZIA [Suspect]
     Indication: CROHN'S DISEASE
     Dosage: 400 MG 1X/2 WEEKS SUBCUTANEOUS
     Route: 058
     Dates: start: 20110307
  2. TRAMADOL HCL [Concomitant]
  3. PENTASA [Concomitant]
  4. IMURAN [Concomitant]

REACTIONS (1)
  - INJECTION SITE DISCOLOURATION [None]
